FAERS Safety Report 21786580 (Version 7)
Quarter: 2023Q2

REPORT INFORMATION
  Report Type: Spontaneous
  Country: CA (occurrence: CA)
  Receive Date: 20221228
  Receipt Date: 20230413
  Transmission Date: 20230722
  Serious: Yes (Hospitalization, Other)
  Sender: FDA-Public Use
  Company Number: CA-CELLTRION INC.-2022CA007164

PATIENT

DRUGS (12)
  1. INFLECTRA [Suspect]
     Active Substance: INFLIXIMAB-DYYB
     Indication: Rheumatoid arthritis
     Dosage: 300 MG, EVERY 8 WEEKS, RAPID INFUSION
     Route: 042
     Dates: start: 20220413, end: 20220413
  2. INFLECTRA [Suspect]
     Active Substance: INFLIXIMAB-DYYB
     Dosage: 300 MG, EVERY 8 WEEKS, RAPID INFUSION
     Route: 042
     Dates: start: 20221101
  3. INFLECTRA [Suspect]
     Active Substance: INFLIXIMAB-DYYB
     Dosage: 500 MG EVERY 6 WEEKS
     Route: 042
     Dates: start: 20221215
  4. INFLECTRA [Suspect]
     Active Substance: INFLIXIMAB-DYYB
     Dosage: 500 MG EVERY 6 WEEKS
     Route: 042
     Dates: start: 20230131
  5. ACETAMINOPHEN [Concomitant]
     Active Substance: ACETAMINOPHEN
     Indication: Premedication
     Dosage: 1000 MG
     Dates: start: 20230131, end: 20230131
  6. CELEBREX [Concomitant]
     Active Substance: CELECOXIB
     Indication: Arthritis
     Dosage: UNK
     Route: 042
  7. CELEBREX [Concomitant]
     Active Substance: CELECOXIB
     Dosage: 1 DF, DOSAGE NOT AVAILABLE
     Route: 042
  8. METHOTREXATE [Concomitant]
     Active Substance: METHOTREXATE
     Indication: Rheumatoid arthritis
     Dosage: UNK UNK, WEEKLY, 2 TABLETS ONCE WEEKLY
     Route: 048
  9. RINVOQ [Concomitant]
     Active Substance: UPADACITINIB
     Dosage: UNK
     Route: 065
  10. RINVOQ [Concomitant]
     Active Substance: UPADACITINIB
     Dosage: 1 DF, DOSAGE NOT AVAILABLE
     Route: 065
  11. CALCIUM\ERGOCALCIFEROL [Concomitant]
     Active Substance: CALCIUM\ERGOCALCIFEROL
     Dosage: UNK
     Route: 065
  12. CALCIUM\ERGOCALCIFEROL [Concomitant]
     Active Substance: CALCIUM\ERGOCALCIFEROL
     Dosage: 1 DF, DOSAGE NOT AVAILABLE
     Route: 065

REACTIONS (10)
  - Condition aggravated [Not Recovered/Not Resolved]
  - Therapeutic response decreased [Unknown]
  - Therapeutic response shortened [Unknown]
  - Off label use [Unknown]
  - Off label use [Unknown]
  - Intentional product use issue [Unknown]
  - Off label use [Unknown]
  - Hypotension [Unknown]
  - Weight decreased [Not Recovered/Not Resolved]
  - Heart rate decreased [Unknown]

NARRATIVE: CASE EVENT DATE: 20220101
